FAERS Safety Report 21694621 (Version 2)
Quarter: 2022Q4

REPORT INFORMATION
  Report Type: Spontaneous
  Country: BR (occurrence: BR)
  Receive Date: 20221207
  Receipt Date: 20221228
  Transmission Date: 20230113
  Serious: Yes (Death, Life-Threatening, Hospitalization, Other)
  Sender: FDA-Public Use
  Company Number: BR-PFIZER INC-PV202200117781

PATIENT
  Age: 63 Year
  Sex: Male

DRUGS (1)
  1. SUTENT [Suspect]
     Active Substance: SUNITINIB MALATE
     Indication: Renal cancer metastatic
     Dosage: 40 MG FOR 5 DAYS
     Route: 048
     Dates: start: 20221121

REACTIONS (5)
  - Renal impairment [Fatal]
  - Blood potassium abnormal [Fatal]
  - Renal failure [Fatal]
  - Pleural effusion [Fatal]
  - Dyspnoea [Fatal]

NARRATIVE: CASE EVENT DATE: 20221125
